FAERS Safety Report 6406512-3 (Version None)
Quarter: 2009Q4

REPORT INFORMATION
  Report Type: 
  Country: None (occurrence: None)
  Receive Date: 20091019
  Receipt Date: 20091006
  Transmission Date: 20100525
  Serious: Yes (Other)
  Sender: FDA-Public Use
  Company Number: PHHY2009AU24912

PATIENT
  Sex: Female

DRUGS (4)
  1. ACLASTA [Suspect]
     Dosage: UNK
     Route: 042
     Dates: start: 20090616
  2. ADALAT [Concomitant]
     Dosage: 10 MG, UNK
     Dates: start: 20060329
  3. ACETAMINOPHEN [Concomitant]
     Dosage: UNK,TID
     Dates: start: 20080707
  4. PARIET [Concomitant]
     Dosage: 20 MG, UNK
     Dates: start: 20030513

REACTIONS (1)
  - THERMAL BURN [None]
